FAERS Safety Report 20861995 (Version 3)
Quarter: 2022Q2

REPORT INFORMATION
  Report Type: Report from Study
  Country: FR (occurrence: FR)
  Receive Date: 20220523
  Receipt Date: 20220614
  Transmission Date: 20220720
  Serious: Yes (Other)
  Sender: FDA-Public Use
  Company Number: FR-GILEAD-2022-0569307

PATIENT
  Sex: Female
  Weight: 69 kg

DRUGS (11)
  1. SACITUZUMAB GOVITECAN [Suspect]
     Active Substance: SACITUZUMAB GOVITECAN
     Indication: Triple negative breast cancer
     Dosage: 7.5 MG/KG, C7D1, C7D8
     Route: 042
     Dates: start: 20220518, end: 20220525
  2. SACITUZUMAB GOVITECAN [Suspect]
     Active Substance: SACITUZUMAB GOVITECAN
     Dosage: 7.5 MG/KG, C6D1, C6D8
     Route: 042
     Dates: start: 20220427, end: 20220504
  3. SACITUZUMAB GOVITECAN [Suspect]
     Active Substance: SACITUZUMAB GOVITECAN
     Dosage: 7.5 MG/KG, C5D1, C5D8
     Route: 042
     Dates: start: 20220406, end: 20220413
  4. SACITUZUMAB GOVITECAN [Suspect]
     Active Substance: SACITUZUMAB GOVITECAN
     Dosage: 7.5 MG/KG, C4D1, C4D8
     Route: 042
     Dates: start: 20220316, end: 20220316
  5. SACITUZUMAB GOVITECAN [Suspect]
     Active Substance: SACITUZUMAB GOVITECAN
     Dosage: C3D1, C3D8
     Route: 065
     Dates: start: 20220223, end: 20220302
  6. SACITUZUMAB GOVITECAN [Suspect]
     Active Substance: SACITUZUMAB GOVITECAN
     Dosage: 7.5 MG/KG, C2D1, C2D8
     Route: 042
     Dates: start: 20220202, end: 20220209
  7. SACITUZUMAB GOVITECAN [Suspect]
     Active Substance: SACITUZUMAB GOVITECAN
     Dosage: 10 MG/KG, C1D1, C1D8
     Route: 042
     Dates: start: 20220105, end: 20220112
  8. SACITUZUMAB GOVITECAN [Suspect]
     Active Substance: SACITUZUMAB GOVITECAN
     Dosage: 10 MG/KG C8D1
     Route: 042
     Dates: start: 20220608
  9. PACLITAXEL [Concomitant]
     Active Substance: PACLITAXEL
  10. DOXORUBICIN [Concomitant]
     Active Substance: DOXORUBICIN
  11. EPIRUBICIN [Concomitant]
     Active Substance: EPIRUBICIN

REACTIONS (3)
  - Hepatic cytolysis [Recovered/Resolved]
  - Neutropenia [Recovered/Resolved]
  - Transaminases increased [Recovered/Resolved]

NARRATIVE: CASE EVENT DATE: 20220125
